FAERS Safety Report 8167780 (Version 3)
Quarter: 2014Q1

REPORT INFORMATION
  Report Type: Report from Study
  Country: GB (occurrence: GB)
  Receive Date: 20111004
  Receipt Date: 20140221
  Transmission Date: 20141002
  Serious: Yes (Hospitalization)
  Sender: FDA-Public Use
  Company Number: GB-CELGENEUS-167-20785-11092655

PATIENT
  Age: 61 Year
  Sex: Male

DRUGS (6)
  1. THALIDOMIDE [Suspect]
     Indication: PLASMA CELL MYELOMA
     Dosage: 200 MILLIGRAM
     Route: 048
     Dates: start: 20110722, end: 20110812
  2. THALIDOMIDE [Suspect]
     Dosage: 200 MILLIGRAM
     Route: 048
     Dates: end: 20110909
  3. DEXAMETHASONE [Suspect]
     Indication: PLASMA CELL MYELOMA
     Dosage: 40 MILLIGRAM
     Route: 048
     Dates: start: 20110722, end: 20110805
  4. DEXAMETHASONE [Suspect]
     Dosage: 40 MILLIGRAM
     Route: 048
     Dates: end: 20110909
  5. CYCLOPHOSPHAMIDE [Suspect]
     Indication: PLASMA CELL MYELOMA
     Dosage: 500 MILLIGRAM
     Route: 048
     Dates: start: 20110722, end: 20110805
  6. CYCLOPHOSPHAMIDE [Suspect]
     Dosage: 500 MILLIGRAM
     Route: 048
     Dates: end: 20110909

REACTIONS (2)
  - Hip fracture [Recovered/Resolved]
  - Sepsis [Recovered/Resolved]
